FAERS Safety Report 6079892-9 (Version None)
Quarter: 2009Q1

REPORT INFORMATION
  Report Type: 
  Country: None (occurrence: None)
  Receive Date: 20090217
  Receipt Date: 20090204
  Transmission Date: 20090719
  Serious: Yes (Hospitalization, Other)
  Sender: FDA-Public Use
  Company Number: AU-ROCHE-609779

PATIENT
  Sex: Male
  Weight: 75 kg

DRUGS (3)
  1. XELODA [Suspect]
     Indication: DRUG USE FOR UNKNOWN INDICATION
     Dosage: DOSING AMOUNT REPORTED AS 1 G/M E2
     Route: 065
     Dates: start: 20070115
  2. XELODA [Suspect]
     Route: 065
     Dates: end: 20080901
  3. OXALIPLATIN [Concomitant]
     Dosage: STRENGTH 130 MG/M2, D1, D21, DOSE 130 MG/M2 RECEIVED ON DAY1 AND  DAY21

REACTIONS (4)
  - CARDIAC ARREST [None]
  - CHEST PAIN [None]
  - DISEASE PROGRESSION [None]
  - VENTRICULAR FIBRILLATION [None]
